FAERS Safety Report 8589344-X (Version None)
Quarter: 2012Q3

REPORT INFORMATION
  Report Type: 
  Country: None (occurrence: None)
  Receive Date: 20120813
  Receipt Date: 20120731
  Transmission Date: 20120928
  Serious: Yes (Life-Threatening, Hospitalization)
  Sender: FDA-Public Use
  Company Number: CA-BAXTER-2012BAX011278

PATIENT
  Sex: Male

DRUGS (8)
  1. DIANEAL [Suspect]
  2. DIANEAL [Suspect]
     Indication: PERITONEAL DIALYSIS
     Route: 033
     Dates: start: 20120215, end: 20120717
  3. EXTRANEAL [Suspect]
     Indication: PERITONEAL DIALYSIS
     Route: 033
     Dates: start: 20120215, end: 20120717
  4. DIANEAL [Suspect]
  5. EXTRANEAL [Suspect]
  6. DIANEAL [Suspect]
     Indication: PERITONEAL DIALYSIS
     Route: 033
     Dates: start: 20120215, end: 20120717
  7. DIANEAL [Suspect]
  8. DIANEAL [Suspect]

REACTIONS (5)
  - FATIGUE [None]
  - DYSPNOEA [None]
  - APPARENT DEATH [None]
  - PLEURAL EFFUSION [None]
  - DIAPHRAGMATIC HERNIA [None]
